FAERS Safety Report 14561615 (Version 4)
Quarter: 2018Q2

REPORT INFORMATION
  Report Type: Spontaneous
  Country: JP (occurrence: JP)
  Receive Date: 20180222
  Receipt Date: 20180504
  Transmission Date: 20180711
  Serious: Yes (Hospitalization)
  Sender: FDA-Public Use
  Company Number: US-ASTRAZENECA-2018SE22170

PATIENT
  Age: 1 Month
  Sex: Female

DRUGS (1)
  1. SYNAGIS [Suspect]
     Active Substance: PALIVIZUMAB
     Indication: PREMATURE BABY
     Route: 030
     Dates: start: 2017, end: 2017

REACTIONS (3)
  - Respiratory syncytial virus infection [Recovering/Resolving]
  - Bronchiolitis [Recovering/Resolving]
  - Selective eating disorder [Unknown]

NARRATIVE: CASE EVENT DATE: 20180107
